FAERS Safety Report 10464073 (Version 1)
Quarter: 2014Q3

REPORT INFORMATION
  Report Type: Spontaneous
  Country: US (occurrence: US)
  Receive Date: 20140919
  Receipt Date: 20140919
  Transmission Date: 20150326
  Serious: Yes (Hospitalization)
  Sender: FDA-Public Use
  Company Number: US-JNJFOC-20140908431

PATIENT
  Age: 89 Year
  Sex: Female
  Weight: 47.17 kg

DRUGS (3)
  1. OTHER THERAPEUTIC MEDICATION [Concomitant]
     Indication: HYPERTENSION
     Route: 065
  2. OTHER THERAPEUTIC MEDICATION [Concomitant]
     Indication: THYROID DISORDER
     Route: 065
  3. TYLENOL EXTRA STRENGTH [Suspect]
     Active Substance: ACETAMINOPHEN
     Indication: PAIN
     Dosage: TWICE, APPROXIMATELY 5 PM AND AGAIN AT 1 AM THE FOLLOWING MORNING
     Route: 048

REACTIONS (3)
  - Wrong technique in drug usage process [Unknown]
  - Abdominal pain [Unknown]
  - Spleen disorder [Recovered/Resolved]
